FAERS Safety Report 9084575 (Version 1)
Quarter: 2013Q1

REPORT INFORMATION
  Report Type: Spontaneous
  Country: US (occurrence: US)
  Receive Date: 20130131
  Receipt Date: 20130131
  Transmission Date: 20140127
  Serious: No
  Sender: FDA-Public Use
  Company Number: US-PFIZER INC-2013037227

PATIENT
  Sex: 0

DRUGS (1)
  1. NEURONTIN [Suspect]
     Indication: SPINAL CORD INJURY
     Dosage: 300 MG, 3X/DAY

REACTIONS (2)
  - Off label use [Recovered/Resolved]
  - Drug ineffective for unapproved indication [Unknown]
